FAERS Safety Report 6270992-7 (Version None)
Quarter: 2009Q3

REPORT INFORMATION
  Report Type: 
  Country: None (occurrence: None)
  Receive Date: 20090716
  Receipt Date: 20090707
  Transmission Date: 20100115
  Serious: Yes (Hospitalization)
  Sender: FDA-Public Use
  Company Number: GB-SANOFI-SYNTHELABO-A01200907324

PATIENT
  Age: 78 Year
  Sex: Female
  Weight: 53.4 kg

DRUGS (5)
  1. XELODA [Suspect]
     Indication: CHEMOTHERAPY
     Dosage: UNK
     Route: 048
     Dates: start: 20090511, end: 20090511
  2. XELODA [Suspect]
     Indication: COLON CANCER
     Dosage: UNK
     Route: 048
     Dates: start: 20090511, end: 20090511
  3. FERROUS SULFATE TAB [Concomitant]
     Dosage: UNK
     Route: 065
  4. OXALIPLATIN [Suspect]
     Indication: CHEMOTHERAPY
     Dosage: 150 MG
     Route: 065
     Dates: start: 20090511, end: 20090511
  5. OXALIPLATIN [Suspect]
     Indication: COLON CANCER
     Dosage: 150 MG
     Route: 065
     Dates: start: 20090511, end: 20090511

REACTIONS (3)
  - DYSARTHRIA [None]
  - FACIAL PALSY [None]
  - NERVOUS SYSTEM DISORDER [None]
